FAERS Safety Report 8264938-X (Version None)
Quarter: 2012Q2

REPORT INFORMATION
  Report Type: 
  Country: None (occurrence: None)
  Receive Date: 20120406
  Receipt Date: 20120404
  Transmission Date: 20120825
  Serious: Yes (Hospitalization)
  Sender: FDA-Public Use
  Company Number: CH-ABBOTT-11P-151-0729998-00

PATIENT
  Age: 31 Year
  Sex: Female

DRUGS (4)
  1. URBANYL [Concomitant]
     Indication: PRODUCT USED FOR UNKNOWN INDICATION
  2. PETINUTIN [Concomitant]
     Indication: PRODUCT USED FOR UNKNOWN INDICATION
  3. DEPAKENE [Suspect]
     Indication: EPILEPSY
     Route: 048
     Dates: end: 20110201
  4. LAMOTRGINE [Concomitant]
     Indication: PRODUCT USED FOR UNKNOWN INDICATION

REACTIONS (3)
  - SUBDURAL HAEMATOMA [None]
  - CEREBRAL HAEMORRHAGE [None]
  - COAGULOPATHY [None]
